FAERS Safety Report 25346558 (Version 1)
Quarter: 2025Q2

REPORT INFORMATION
  Report Type: Spontaneous
  Country: NO (occurrence: NO)
  Receive Date: 20250522
  Receipt Date: 20250522
  Transmission Date: 20250717
  Serious: Yes (Hospitalization)
  Sender: MYLAN
  Company Number: NO-MYLANLABS-2025M1042658

PATIENT
  Age: 79 Year
  Sex: Male

DRUGS (8)
  1. VANCOMYCIN [Suspect]
     Active Substance: VANCOMYCIN
     Indication: Sepsis
  2. VANCOMYCIN [Suspect]
     Active Substance: VANCOMYCIN
     Route: 042
  3. VANCOMYCIN [Suspect]
     Active Substance: VANCOMYCIN
     Route: 042
  4. VANCOMYCIN [Suspect]
     Active Substance: VANCOMYCIN
  5. LINEZOLID [Concomitant]
     Active Substance: LINEZOLID
     Indication: Sepsis
  6. LINEZOLID [Concomitant]
     Active Substance: LINEZOLID
     Route: 065
  7. LINEZOLID [Concomitant]
     Active Substance: LINEZOLID
     Route: 065
  8. LINEZOLID [Concomitant]
     Active Substance: LINEZOLID

REACTIONS (1)
  - Pathogen resistance [Unknown]
